FAERS Safety Report 13274973 (Version 1)
Quarter: 2017Q1

REPORT INFORMATION
  Report Type: Spontaneous
  Country: US (occurrence: US)
  Receive Date: 20170227
  Receipt Date: 20170227
  Transmission Date: 20170428
  Serious: Yes (Other)
  Sender: FDA-Public Use
  Company Number: US-ELI_LILLY_AND_COMPANY-US201608002368

PATIENT
  Sex: Female
  Weight: 75.28 kg

DRUGS (1)
  1. CYMBALTA [Suspect]
     Active Substance: DULOXETINE HYDROCHLORIDE
     Indication: ANXIETY
     Dosage: 30 MG, QD
     Route: 065
     Dates: start: 20100323, end: 201005

REACTIONS (5)
  - Confusional state [Unknown]
  - Drug withdrawal syndrome [Unknown]
  - Insomnia [Unknown]
  - Paraesthesia [Unknown]
  - Suicidal ideation [Unknown]
